FAERS Safety Report 6925633-X (Version None)
Quarter: 2010Q3

REPORT INFORMATION
  Report Type: 
  Country: None (occurrence: None)
  Receive Date: 20100816
  Receipt Date: 20100812
  Transmission Date: 20110219
  Serious: Yes (Hospitalization)
  Sender: FDA-Public Use
  Company Number: US-JNJFOC-20100207939

PATIENT
  Sex: Female
  Weight: 85.28 kg

DRUGS (7)
  1. INVEGA SUSTENNA [Suspect]
     Indication: SCHIZOPHRENIA
     Route: 030
  2. INVEGA SUSTENNA [Suspect]
     Route: 030
  3. INVEGA SUSTENNA [Suspect]
     Route: 030
  4. INVEGA SUSTENNA [Suspect]
     Route: 030
  5. PROZAC [Concomitant]
     Indication: DEPRESSION
  6. FISH OIL [Concomitant]
     Indication: TREMOR
  7. RESTORIL [Concomitant]
     Indication: INSOMNIA

REACTIONS (12)
  - CHOLELITHIASIS [None]
  - CONFUSIONAL STATE [None]
  - DISORIENTATION [None]
  - DYSPNOEA [None]
  - HEADACHE [None]
  - HEART RATE INCREASED [None]
  - MENTAL STATUS CHANGES [None]
  - MUSCLE RIGIDITY [None]
  - PANCREATITIS [None]
  - PSYCHOTIC DISORDER [None]
  - PYREXIA [None]
  - SYNCOPE [None]
